FAERS Safety Report 5550872-2 (Version None)
Quarter: 2007Q4

REPORT INFORMATION
  Report Type: 
  Country: None (occurrence: None)
  Receive Date: 20071210
  Receipt Date: 20040128
  Transmission Date: 20080405
  Serious: Yes (Hospitalization)
  Sender: FDA-Public Use
  Company Number: S07-FIN-06178-02

PATIENT
  Sex: Male
  Weight: 3.7 kg

DRUGS (2)
  1. CITALOPRAM HYDROBROMIDE [Suspect]
     Dosage: 10 MG QD TRANSPLACENTAL
     Route: 064
     Dates: end: 20031018
  2. CITALOPRAM HYDROBROMIDE [Suspect]
     Dosage: 10 MG QD BF
     Dates: start: 20031018

REACTIONS (12)
  - AMMONIA INCREASED [None]
  - CULTURE URINE POSITIVE [None]
  - DRUG EXPOSURE DURING PREGNANCY [None]
  - DRUG EXPOSURE VIA BREAST MILK [None]
  - DRUG WITHDRAWAL SYNDROME [None]
  - ESCHERICHIA INFECTION [None]
  - FEEDING DISORDER NEONATAL [None]
  - MATERNAL CONDITION AFFECTING FOETUS [None]
  - PROTEIN URINE PRESENT [None]
  - RED BLOOD CELLS URINE [None]
  - UTERINE INFECTION [None]
  - WHITE BLOOD CELLS URINE [None]
